FAERS Safety Report 8204281-8 (Version None)
Quarter: 2012Q1

REPORT INFORMATION
  Report Type: 
  Country: None (occurrence: None)
  Receive Date: 20120309
  Receipt Date: 20120302
  Transmission Date: 20120608
  Serious: Yes (Hospitalization, Disabling, Other)
  Sender: FDA-Public Use
  Company Number: 2011MA003913

PATIENT
  Sex: Male
  Weight: 127.0072 kg

DRUGS (81)
  1. ERYTHROMYCIN [Concomitant]
  2. LANTUS [Concomitant]
  3. NOVOLOG [Concomitant]
  4. LEVAQUIN [Concomitant]
  5. LISINOPRIL [Concomitant]
  6. NIZORAL [Concomitant]
  7. PREVACID [Concomitant]
  8. SENOKOT [Concomitant]
  9. ADVICOR [Concomitant]
  10. ASPIRIN [Concomitant]
  11. DIOVAN [Concomitant]
  12. GEMFIBROZIL [Concomitant]
  13. GLUCOPHAGE [Concomitant]
  14. KAPIDEX [Concomitant]
  15. M.V.I. [Concomitant]
  16. PROCHLORPERAZINE [Concomitant]
  17. PROMETHAZINE [Concomitant]
  18. TERBINAFINE HCL [Concomitant]
  19. METOCLOPRAMIDE [Suspect]
     Indication: IMPAIRED GASTRIC EMPTYING
     Dosage: 10 MG , QID, PO
     Route: 048
     Dates: start: 19980629, end: 20090701
  20. METOCLOPRAMIDE [Suspect]
     Indication: GASTROOESOPHAGEAL REFLUX DISEASE
     Dosage: 10 MG , QID, PO
     Route: 048
     Dates: start: 19980629, end: 20090701
  21. BYSTOLIC [Concomitant]
  22. CEPHALEXIN [Concomitant]
  23. CLINDAMYCIN [Concomitant]
  24. CLOTRIMAZOLE/BETAMETHASONE DIPROPIONATE [Concomitant]
  25. GLIMEPIRIDE [Concomitant]
  26. INDOMETHACIN [Concomitant]
  27. HUMALOG [Concomitant]
  28. NEOMYCIN AND POLYMXIN B SULFATES AND HYDROCORTISONE [Concomitant]
  29. NITROGLYCERIN [Concomitant]
  30. SINEMET [Concomitant]
  31. TRAZODONE HCL [Concomitant]
  32. TRICOR [Concomitant]
  33. VOLTAREN [Concomitant]
  34. WARFARIN SODIUM [Concomitant]
  35. ALTACE [Concomitant]
  36. BUPROPION HCL [Concomitant]
  37. FLUCONAZOLE [Concomitant]
  38. FLUTICASONE [Concomitant]
  39. IMITREX [Concomitant]
  40. JANUMET [Concomitant]
  41. LOVENOX [Concomitant]
  42. LUNESTA [Concomitant]
  43. LYRICA [Concomitant]
  44. MAGIC MOUTHWASH [Concomitant]
  45. SULFAMETHOXAZOLE AND TRIMETHOPRIM [Concomitant]
  46. ACETONIDE [Concomitant]
  47. EPIPEN [Concomitant]
  48. LOVAZA [Concomitant]
  49. ROPINIROLE [Concomitant]
  50. ALLEGRA [Concomitant]
  51. ALLOPURINOL [Concomitant]
  52. CRESTOR [Concomitant]
  53. CYCLOBENZAPRINE HCL [Concomitant]
  54. HYDROCHLOROTHIAZIDE [Concomitant]
  55. HYDROCODONE BITARTRATE [Concomitant]
  56. JAUVIA [Concomitant]
  57. ONDANSETRON [Concomitant]
  58. SONATA [Concomitant]
  59. VALTURNA [Concomitant]
  60. ACTOS [Concomitant]
  61. AMITIZA [Concomitant]
  62. AMITRIPTYLINE HCL [Concomitant]
  63. CIPROFLOXACIN [Concomitant]
  64. LEVEMIR [Concomitant]
  65. MORPHINE [Concomitant]
  66. PROPOXYPHENE HCL AND ACETAMINOPHEN [Concomitant]
  67. SENSORCAINE [Concomitant]
  68. TOPROL-XL [Concomitant]
  69. TRIAMCINOLONE [Concomitant]
  70. ZETIA [Concomitant]
  71. HUMULIN R [Concomitant]
  72. KEFLEX [Concomitant]
  73. LIPITOR [Concomitant]
  74. NITROGLYCERIN [Concomitant]
  75. NORTRIPTYLINE HCL [Concomitant]
  76. OMEPRAZOLE [Concomitant]
  77. PROTONIX [Concomitant]
  78. PROZAC [Concomitant]
  79. TORADOL [Concomitant]
  80. ZOLOFT [Concomitant]
  81. ZYRTEC [Concomitant]

REACTIONS (72)
  - DIABETIC RETINOPATHY [None]
  - DIABETIC NEPHROPATHY [None]
  - DIARRHOEA [None]
  - PROTEINURIA [None]
  - TREATMENT NONCOMPLIANCE [None]
  - FALL [None]
  - SLEEP APNOEA SYNDROME [None]
  - TOE AMPUTATION [None]
  - OSTEOARTHRITIS [None]
  - DIVERTICULUM INTESTINAL [None]
  - CARPAL TUNNEL SYNDROME [None]
  - INNER EAR DISORDER [None]
  - PARAESTHESIA [None]
  - HYPONATRAEMIA [None]
  - ARTHRALGIA [None]
  - COMPARTMENT SYNDROME [None]
  - PAIN IN EXTREMITY [None]
  - ANAEMIA [None]
  - CONTUSION [None]
  - SPLENOMEGALY [None]
  - RENAL FAILURE CHRONIC [None]
  - RENAL FAILURE ACUTE [None]
  - DIABETES MELLITUS INADEQUATE CONTROL [None]
  - ABDOMINAL PAIN [None]
  - IMPAIRED HEALING [None]
  - LACERATION [None]
  - CHANGE OF BOWEL HABIT [None]
  - DIABETIC ENTEROPATHY [None]
  - EXTRAPYRAMIDAL DISORDER [None]
  - FAMILY STRESS [None]
  - DYSKINESIA [None]
  - DEHYDRATION [None]
  - DEEP VEIN THROMBOSIS [None]
  - NEUROPATHY PERIPHERAL [None]
  - BLINDNESS [None]
  - OSTEOMYELITIS [None]
  - ECONOMIC PROBLEM [None]
  - NEUROPATHIC ARTHROPATHY [None]
  - PRESYNCOPE [None]
  - DYSPNOEA [None]
  - GAIT DISTURBANCE [None]
  - HAEMORRHOIDS [None]
  - BLOOD TRIGLYCERIDES INCREASED [None]
  - TARDIVE DYSKINESIA [None]
  - RESTLESS LEGS SYNDROME [None]
  - EMOTIONAL DISORDER [None]
  - HYPERTENSION [None]
  - VOMITING [None]
  - DIZZINESS [None]
  - CONGENITAL NYSTAGMUS [None]
  - DEPRESSION [None]
  - GLYCOSYLATED HAEMOGLOBIN INCREASED [None]
  - DIABETES MELLITUS [None]
  - LYMPHADENOPATHY [None]
  - MYELOPROLIFERATIVE DISORDER [None]
  - IMPAIRED GASTRIC EMPTYING [None]
  - NAUSEA [None]
  - HYPERGLYCAEMIA [None]
  - DIABETIC NEUROPATHY [None]
  - MIGRAINE [None]
  - WOUND INFECTION [None]
  - JOINT RANGE OF MOTION DECREASED [None]
  - OESOPHAGITIS [None]
  - HYPERKERATOSIS [None]
  - AXONAL NEUROPATHY [None]
  - NEPHROPATHY [None]
  - HYPOAESTHESIA [None]
  - ASTHENIA [None]
  - MUSCULAR WEAKNESS [None]
  - ARTHRITIS [None]
  - COLITIS [None]
  - BLOOD GLUCOSE INCREASED [None]
